FAERS Safety Report 8812031 (Version 3)
Quarter: 2013Q3

REPORT INFORMATION
  Report Type: Spontaneous
  Country: US (occurrence: US)
  Receive Date: 20120927
  Receipt Date: 20130719
  Transmission Date: 20140515
  Serious: Yes (Other)
  Sender: FDA-Public Use
  Company Number: CHPA2012US020387

PATIENT
  Age: 69 Year
  Sex: Male

DRUGS (5)
  1. MAALOX ANTACID/ANTIGAS MAX QDTABS ASST [Suspect]
     Indication: ULCER HAEMORRHAGE
     Dosage: 2 DF, UNK
     Route: 048
     Dates: start: 2010, end: 2010
  2. MAALOX ANTACID/ANTIGAS MAX QDTABS ASST [Suspect]
     Indication: DYSPEPSIA
     Dosage: 2 DF, AFTER MEALS
     Route: 048
     Dates: start: 2010
  3. PEPTO-BISMOL [Concomitant]
     Dosage: UNK, UNK
     Dates: start: 20120919, end: 20121004
  4. RADIATION THERAPY [Concomitant]
     Indication: PROSTATE CANCER
     Dosage: UNK, UNK
     Dates: start: 2005, end: 2005
  5. RESTASIS [Concomitant]
     Indication: DRY EYE
     Dosage: UNK, UNK

REACTIONS (12)
  - Basal cell carcinoma [Not Recovered/Not Resolved]
  - Gastrointestinal disorder [Not Recovered/Not Resolved]
  - Ulcer haemorrhage [Not Recovered/Not Resolved]
  - Ear infection [Not Recovered/Not Resolved]
  - Infection [Not Recovered/Not Resolved]
  - Body temperature increased [Unknown]
  - Dyspepsia [Not Recovered/Not Resolved]
  - Hyperaesthesia [Unknown]
  - Skin discolouration [Not Recovered/Not Resolved]
  - Melaena [Unknown]
  - Therapeutic response unexpected [Unknown]
  - Off label use [Unknown]
